FAERS Safety Report 9801932 (Version 2)
Quarter: 2014Q1

REPORT INFORMATION
  Report Type: Spontaneous
  Country: US (occurrence: US)
  Receive Date: 20140107
  Receipt Date: 20140107
  Transmission Date: 20141002
  Serious: Yes (Death)
  Sender: FDA-Public Use
  Company Number: US-INCYTE CORPORATION-2013IN002082

PATIENT
  Age: 82 Year
  Sex: Male

DRUGS (3)
  1. JAKAFI [Suspect]
     Indication: MYELOFIBROSIS
     Dosage: 5 MG, BID
     Route: 048
     Dates: start: 20130830
  2. JAKAFI [Suspect]
     Dosage: 20 MG, QD
     Route: 048
     Dates: end: 20131118
  3. JAKAFI [Suspect]
     Dosage: 20 MG,BID
     Route: 048
     Dates: end: 20131217

REACTIONS (2)
  - Death [Fatal]
  - Headache [Unknown]
